FAERS Safety Report 5457246-3 (Version None)
Quarter: 2007Q3

REPORT INFORMATION
  Report Type: 
  Country: None (occurrence: None)
  Receive Date: 20070918
  Receipt Date: 20070208
  Transmission Date: 20080115
  Serious: No
  Sender: FDA-Public Use
  Company Number: US-ASTRAZENECA-2007UW02655

PATIENT
  Age: 43 Year
  Sex: Female
  Weight: 75.3 kg

DRUGS (9)
  1. SEROQUEL [Suspect]
     Indication: ANXIETY
     Dosage: 100 MG IN AM AND 600 MG IN PM
     Route: 048
     Dates: start: 20050201
  2. SEROQUEL [Suspect]
     Indication: DEPRESSION
     Dosage: 100 MG IN AM AND 600 MG IN PM
     Route: 048
     Dates: start: 20050201
  3. SEROQUEL [Suspect]
     Indication: BIPOLAR DISORDER
     Dosage: 100 MG IN AM AND 600 MG IN PM
     Route: 048
     Dates: start: 20050201
  4. DEPAKOTE [Concomitant]
  5. FLEXERIL [Concomitant]
  6. VICODIN [Concomitant]
  7. XANAX [Concomitant]
  8. VISTARIL [Concomitant]
  9. METHADONE HCL [Concomitant]

REACTIONS (1)
  - NASOPHARYNGITIS [None]
